FAERS Safety Report 18633774 (Version 1)
Quarter: 2020Q4

REPORT INFORMATION
  Report Type: Spontaneous
  Country: FR (occurrence: FR)
  Receive Date: 20201218
  Receipt Date: 20201218
  Transmission Date: 20210114
  Serious: Yes (Other)
  Sender: FDA-Public Use
  Company Number: FR-AMERICAN REGENT INC-2020002651

PATIENT
  Age: 34 Year
  Sex: Female
  Weight: 117 kg

DRUGS (4)
  1. PROFENID [Concomitant]
     Active Substance: KETOPROFEN
     Indication: PAIN
     Dosage: 1 DOSAGE FORM, 1 IN 6 HRS
     Route: 048
     Dates: start: 20201129
  2. TRAMADOL. [Concomitant]
     Active Substance: TRAMADOL
     Indication: PAIN
     Dosage: 1 DOSAGE FORM, 1 IN 16 HR
     Route: 048
     Dates: start: 20201129
  3. FERINJECT [Suspect]
     Active Substance: FERRIC CARBOXYMALTOSE
     Indication: PRODUCT USED FOR UNKNOWN INDICATION
     Dosage: 2X500MG IN 100 ML 0.9% STERILE SODIUM CHLORIDE (1000MG)
     Dates: start: 20201129, end: 2020
  4. TOPALGIC                           /00599202/ [Concomitant]
     Active Substance: TRAMADOL HYDROCHLORIDE
     Indication: PAIN
     Dosage: 1 DOSAGE FORM, 1 IN 3 HR
     Route: 042
     Dates: start: 20201129

REACTIONS (3)
  - Infusion site discolouration [Not Recovered/Not Resolved]
  - Maternal exposure during pregnancy [Unknown]
  - Infusion site extravasation [Not Recovered/Not Resolved]

NARRATIVE: CASE EVENT DATE: 20201129
